FAERS Safety Report 5043915-6 (Version None)
Quarter: 2006Q2

REPORT INFORMATION
  Report Type: 
  Country: None (occurrence: None)
  Receive Date: 20060629
  Receipt Date: 20060626
  Transmission Date: 20061013
  Serious: Yes (Hospitalization)
  Sender: FDA-Public Use
  Company Number: SPV1-2006-00120

PATIENT
  Age: 39 Year
  Sex: Male

DRUGS (6)
  1. MESALAMINE [Suspect]
     Indication: COLITIS ULCERATIVE
     Dosage: 4 G DAILY
  2. MESALAMINE [Suspect]
     Indication: COLITIS ULCERATIVE
     Dosage: 1 G/12 HOURS RECTAL
     Route: 054
  3. METHYLPREDNISOLONE [Concomitant]
  4. VITAMIN D [Concomitant]
  5. CALCIUM GLUCONATE [Concomitant]
  6. HEPARIN [Concomitant]

REACTIONS (6)
  - CARDIOMEGALY [None]
  - DILATATION VENTRICULAR [None]
  - EJECTION FRACTION DECREASED [None]
  - MITRAL VALVE INCOMPETENCE [None]
  - MYOPERICARDITIS [None]
  - TACHYCARDIA [None]
